FAERS Safety Report 10906277 (Version 3)
Quarter: 2017Q4

REPORT INFORMATION
  Report Type: Report from Study
  Country: AR (occurrence: AR)
  Receive Date: 20150311
  Receipt Date: 20171115
  Transmission Date: 20180320
  Serious: Yes (Other)
  Sender: FDA-Public Use
  Company Number: AR-BRISTOL-MYERS SQUIBB COMPANY-BMS-2015-013509

PATIENT
  Age: 78 Year
  Sex: Female

DRUGS (1)
  1. ABATACEPT [Suspect]
     Active Substance: ABATACEPT
     Indication: RHEUMATOID ARTHRITIS
     Dosage: 125 UNK, QWK
     Route: 058
     Dates: start: 20140724

REACTIONS (11)
  - Wound infection [Unknown]
  - Hip fracture [Recovering/Resolving]
  - Infected skin ulcer [Unknown]
  - Hepatic cyst [Unknown]
  - Arthropathy [Not Recovered/Not Resolved]
  - Joint swelling [Unknown]
  - Fall [Unknown]
  - Cataract [Not Recovered/Not Resolved]
  - Hepatitis B [Not Recovered/Not Resolved]
  - Musculoskeletal stiffness [Unknown]
  - Lung cyst [Unknown]

NARRATIVE: CASE EVENT DATE: 20150203
